FAERS Safety Report 12464184 (Version 2)
Quarter: 2016Q3

REPORT INFORMATION
  Report Type: Spontaneous
  Country: FR (occurrence: FR)
  Receive Date: 20160614
  Receipt Date: 20160802
  Transmission Date: 20161109
  Serious: Yes (Hospitalization, Other)
  Sender: FDA-Public Use
  Company Number: FR-GLAXOSMITHKLINE-B1025385A

PATIENT
  Sex: Female

DRUGS (3)
  1. SIFROL [Suspect]
     Active Substance: PRAMIPEXOLE
     Indication: RESTLESS LEGS SYNDROME
     Dosage: 0.52 MG, 1D
     Route: 065
     Dates: start: 2013
  2. SEROPRAM [Concomitant]
     Active Substance: CITALOPRAM HYDROBROMIDE
     Indication: DEPRESSION
     Dosage: UNK
     Dates: start: 2005
  3. ADARTREL [Suspect]
     Active Substance: ROPINIROLE
     Indication: RESTLESS LEGS SYNDROME
     Dosage: 4.5 MG, 1D
     Route: 048
     Dates: start: 2003, end: 2013

REACTIONS (11)
  - Depression [Not Recovered/Not Resolved]
  - Morbid thoughts [Not Recovered/Not Resolved]
  - Compulsive shopping [Recovered/Resolved]
  - Overdose [Unknown]
  - Abnormal behaviour [Unknown]
  - Inappropriate schedule of drug administration [Unknown]
  - Suicide attempt [Recovered/Resolved]
  - Sleep disorder [Unknown]
  - Psychological trauma [Unknown]
  - Economic problem [Not Recovered/Not Resolved]
  - Economic problem [Unknown]

NARRATIVE: CASE EVENT DATE: 2005
